FAERS Safety Report 4887611-4 (Version None)
Quarter: 2006Q1

REPORT INFORMATION
  Report Type: 
  Country: None (occurrence: None)
  Receive Date: 20060119
  Receipt Date: 20060119
  Transmission Date: 20060701
  Serious: Yes (Hospitalization)
  Sender: FDA-Public Use
  Company Number: None

PATIENT
  Age: 51 Year
  Sex: Male
  Weight: 89.3586 kg

DRUGS (6)
  1. METOPROLOL [Suspect]
     Dosage: 300 MG PO QD
     Route: 048
  2. AMLODIPINE [Suspect]
     Dosage: 5 MG QD
  3. MINOXIDIL [Suspect]
  4. LOSARTAN POTASSIUM [Suspect]
  5. CLONIDINE [Suspect]
  6. NIFEDIPINE [Concomitant]

REACTIONS (3)
  - FEELING ABNORMAL [None]
  - HYPOTENSION [None]
  - WRONG DRUG ADMINISTERED [None]
